FAERS Safety Report 6555556-X (Version None)
Quarter: 2010Q1

REPORT INFORMATION
  Report Type: 
  Country: None (occurrence: None)
  Receive Date: 20100128
  Receipt Date: 20100122
  Transmission Date: 20100710
  Serious: Yes (Hospitalization)
  Sender: FDA-Public Use
  Company Number: US-SANOFI-AVENTIS-2010SA004444

PATIENT
  Age: 60 Year
  Sex: Female

DRUGS (11)
  1. DOCETAXEL [Suspect]
     Indication: BREAST CANCER
     Route: 042
     Dates: start: 20090429, end: 20090429
  2. DOCETAXEL [Suspect]
     Route: 042
     Dates: start: 20090318, end: 20090318
  3. CYCLOPHOSPHAMIDE [Suspect]
     Indication: BREAST CANCER
     Route: 042
     Dates: start: 20090429, end: 20090429
  4. CYCLOPHOSPHAMIDE [Suspect]
     Route: 042
     Dates: start: 20090318, end: 20090318
  5. GLUCOPHAGE [Concomitant]
  6. GLUCOTROL [Concomitant]
  7. ACTOS [Concomitant]
  8. LANTUS [Concomitant]
  9. HYDROCHLOROTHIAZIDE [Concomitant]
  10. VERAPAMIL [Concomitant]
  11. ATORVASTATIN [Concomitant]

REACTIONS (3)
  - DIARRHOEA [None]
  - FEBRILE NEUTROPENIA [None]
  - HYPOCALCAEMIA [None]
